FAERS Safety Report 9268296 (Version 2)
Quarter: 2013Q4

REPORT INFORMATION
  Report Type: Spontaneous
  Country: BG (occurrence: BG)
  Receive Date: 20130502
  Receipt Date: 20131227
  Transmission Date: 20140711
  Serious: Yes (Other)
  Sender: FDA-Public Use
  Company Number: BG-UCBSA-084727

PATIENT
  Age: 43 Year
  Sex: Male

DRUGS (3)
  1. VIMPAT [Suspect]
     Indication: EPILEPSY
     Route: 048
     Dates: end: 2013
  2. KEPPRA [Concomitant]
     Dosage: UNKNOWN DOSE
  3. TRILEPTAL [Concomitant]
     Dosage: UNKNOWN DOSE

REACTIONS (1)
  - Arrhythmia [Recovered/Resolved]
